FAERS Safety Report 5622917-2 (Version None)
Quarter: 2008Q1

REPORT INFORMATION
  Report Type: 
  Country: None (occurrence: None)
  Receive Date: 20080212
  Receipt Date: 20080207
  Transmission Date: 20080703
  Serious: Yes (Hospitalization)
  Sender: FDA-Public Use
  Company Number: PHRM2007FR02824

PATIENT
  Sex: Female
  Weight: 47 kg

DRUGS (3)
  1. LAMISIL [Suspect]
     Indication: ONYCHOMYCOSIS
     Dosage: 250 MG, QD
     Route: 048
     Dates: start: 20070721, end: 20070728
  2. OROCAL VITAMIN D [Concomitant]
     Indication: OSTEOPOROSIS
     Dates: start: 20010101
  3. ACTIVELLE [Concomitant]
     Dates: start: 20010101

REACTIONS (3)
  - NAUSEA [None]
  - VERTIGO [None]
  - VOMITING [None]
